FAERS Safety Report 4359403-6 (Version None)
Quarter: 2004Q2

REPORT INFORMATION
  Report Type: 
  Country: None (occurrence: None)
  Receive Date: 20040514
  Receipt Date: 20040514
  Transmission Date: 20050107
  Serious: Yes (Hospitalization)
  Sender: FDA-Public Use
  Company Number: None

PATIENT
  Age: 60 Year
  Sex: Male

DRUGS (5)
  1. METOPROLOL TARTRATE [Suspect]
     Indication: HYPERTENSION
     Dosage: 25 MG BID
     Dates: start: 20040124
  2. ISOSORBIDE [Concomitant]
  3. FOSINOPRIL SODIUM [Concomitant]
  4. LOVASTATIN [Concomitant]
  5. NITROGLYCERIN [Concomitant]

REACTIONS (1)
  - BRADYCARDIA [None]
